FAERS Safety Report 13855623 (Version 4)
Quarter: 2019Q2

REPORT INFORMATION
  Report Type: Spontaneous
  Country: US (occurrence: US)
  Receive Date: 20170810
  Receipt Date: 20190520
  Transmission Date: 20190711
  Serious: Yes (Other)
  Sender: FDA-Public Use
  Company Number: US-VIFOR (INTERNATIONAL) INC.-VIT-2017-05468

PATIENT
  Age: 86 Year
  Sex: Male

DRUGS (12)
  1. METOPROLOL TARTRATE. [Concomitant]
     Active Substance: METOPROLOL TARTRATE
  2. LACTULOSE. [Concomitant]
     Active Substance: LACTULOSE
  3. ASPIRIN. [Concomitant]
     Active Substance: ASPIRIN
  4. VELTASSA [Suspect]
     Active Substance: PATIROMER
     Indication: HYPERKALAEMIA
     Route: 048
     Dates: start: 20160301
  5. VITAMIN D [Concomitant]
     Active Substance: VITAMIN D NOS
  6. NEPHPLEX RX [Concomitant]
     Active Substance: ASCORBIC ACID\BIOTIN\COBALAMIN\FOLIC ACID\NIACINAMIDE\PANTOTHENIC ACID\PYRIDOXINE HYDROCHLORIDE\RIBOFLAVIN\THIAMINE\ZINC OXIDE
  7. SODIUM BICARBONATE. [Concomitant]
     Active Substance: SODIUM BICARBONATE
  8. SIMVASTATIN. [Concomitant]
     Active Substance: SIMVASTATIN
  9. IRON [Concomitant]
     Active Substance: IRON
  10. FINASTERIDE. [Concomitant]
     Active Substance: FINASTERIDE
  11. VELTASSA [Suspect]
     Active Substance: PATIROMER
     Dates: end: 20190503
  12. DONEPEZIL HCL [Concomitant]
     Active Substance: DONEPEZIL HYDROCHLORIDE

REACTIONS (4)
  - Faecaloma [Unknown]
  - Constipation [Not Recovered/Not Resolved]
  - Diarrhoea [Unknown]
  - Proctalgia [Unknown]

NARRATIVE: CASE EVENT DATE: 201603
